FAERS Safety Report 7425813-3 (Version None)
Quarter: 2011Q2

REPORT INFORMATION
  Report Type: 
  Country: None (occurrence: None)
  Receive Date: 20110420
  Receipt Date: 20110407
  Transmission Date: 20111010
  Serious: Yes (Hospitalization)
  Sender: FDA-Public Use
  Company Number: US-JNJFOC-20110205887

PATIENT
  Sex: Male
  Weight: 82.56 kg

DRUGS (14)
  1. OMEPRAZOLE [Concomitant]
     Indication: CROHN'S DISEASE
  2. REMICADE [Suspect]
     Route: 042
  3. FOLIC ACID [Concomitant]
     Indication: CROHN'S DISEASE
  4. IMODIUM [Concomitant]
     Indication: CROHN'S DISEASE
  5. REMICADE [Suspect]
     Route: 042
  6. ANTIHISTAMINES [Concomitant]
     Indication: PREMEDICATION
  7. VITAMIN B-12 [Concomitant]
     Indication: CROHN'S DISEASE
  8. REMICADE [Suspect]
     Indication: CROHN'S DISEASE
     Route: 042
  9. REMICADE [Suspect]
     Route: 042
  10. REMICADE [Suspect]
     Route: 042
  11. ACETAMINOPHEN [Concomitant]
     Indication: PREMEDICATION
  12. STEROIDS NOS [Concomitant]
  13. REMICADE [Suspect]
     Route: 042
  14. STEROIDS NOS [Concomitant]
     Indication: PREMEDICATION

REACTIONS (2)
  - ANAEMIA [None]
  - HAEMATOCHEZIA [None]
